FAERS Safety Report 15827759 (Version 1)
Quarter: 2019Q1

REPORT INFORMATION
  Report Type: Spontaneous
  Country: US (occurrence: US)
  Receive Date: 20190115
  Receipt Date: 20190115
  Transmission Date: 20190417
  Serious: Yes (Other)
  Sender: FDA-Public Use
  Company Number: US-REGENERON PHARMACEUTICALS, INC.-2018-17489

PATIENT

DRUGS (3)
  1. EYLEA [Suspect]
     Active Substance: AFLIBERCEPT
     Dosage: 0.05 ML, MONTHLY, LAST DOSE
     Route: 031
     Dates: start: 20180116, end: 20180116
  2. EYLEA [Suspect]
     Active Substance: AFLIBERCEPT
     Indication: NEOVASCULAR AGE-RELATED MACULAR DEGENERATION
     Dosage: 0.05 ML, MONTHLY
     Route: 031
     Dates: start: 20130919, end: 20180115
  3. EYLEA [Suspect]
     Active Substance: AFLIBERCEPT
     Dosage: 0.05 ML, MONTHLY, FIRST IN OD
     Route: 031
     Dates: start: 20140911, end: 20140911

REACTIONS (3)
  - Intraocular pressure increased [Unknown]
  - Eye inflammation [Recovered/Resolved]
  - Visual acuity reduced [Unknown]

NARRATIVE: CASE EVENT DATE: 20180116
